FAERS Safety Report 9380294 (Version 1)
Quarter: 2013Q3

REPORT INFORMATION
  Report Type: Spontaneous
  Country: US (occurrence: None)
  Receive Date: 20130701
  Receipt Date: 20130701
  Transmission Date: 20140515
  Serious: Yes (Life-Threatening, Other)
  Sender: FDA-Public Use
  Company Number: None

PATIENT
  Age: 25 Year
  Sex: Male
  Weight: 183.71 kg

DRUGS (1)
  1. TRAZODONE [Suspect]
     Dosage: ONE WHILE  EATING ... ...

REACTIONS (5)
  - Headache [None]
  - Confusional state [None]
  - Pyrexia [None]
  - Blister [None]
  - Feeling abnormal [None]
